FAERS Safety Report 17841329 (Version 1)
Quarter: 2020Q2

REPORT INFORMATION
  Report Type: Spontaneous
  Country: FR (occurrence: FR)
  Receive Date: 20200529
  Receipt Date: 20200529
  Transmission Date: 20200714
  Serious: Yes (Hospitalization)
  Sender: FDA-Public Use
  Company Number: FR-TEVA-2020-FR-1241297

PATIENT
  Age: 77 Year
  Sex: Female

DRUGS (3)
  1. FLUOROURACILE [Suspect]
     Active Substance: FLUOROURACIL
     Indication: ANAL CANCER METASTATIC
     Dosage: 600 MG/M2
     Route: 042
     Dates: start: 20200408, end: 20200408
  2. OXALIPLATINE [Suspect]
     Active Substance: OXALIPLATIN
     Indication: ANAL CANCER METASTATIC
     Dosage: 85MG/M2
     Route: 042
     Dates: start: 20200408, end: 20200408
  3. FOLINATE DE CALCIUM [Concomitant]
     Active Substance: LEUCOVORIN CALCIUM
     Indication: ANAL CANCER METASTATIC
     Route: 042
     Dates: start: 20200408, end: 20200408

REACTIONS (2)
  - Pancytopenia [Recovered/Resolved]
  - Diarrhoea [Recovered/Resolved]

NARRATIVE: CASE EVENT DATE: 202004
